FAERS Safety Report 6358203-5 (Version None)
Quarter: 2009Q3

REPORT INFORMATION
  Report Type: 
  Country: None (occurrence: None)
  Receive Date: 20090916
  Receipt Date: 20090911
  Transmission Date: 20100115
  Serious: Yes (Death, Hospitalization)
  Sender: FDA-Public Use
  Company Number: US-JNJFOC-20090800813

PATIENT
  Sex: Female
  Weight: 78.47 kg

DRUGS (14)
  1. FLEXERIL [Suspect]
     Indication: PAIN
     Dosage: UNKNOWN
  2. CARDIZEM CD [Suspect]
  3. CARDIZEM CD [Suspect]
     Indication: DRUG USE FOR UNKNOWN INDICATION
  4. TAZAC [Concomitant]
  5. BUSPIRONE HCL [Concomitant]
     Indication: DEPRESSION
  6. GEODON [Concomitant]
     Indication: BIPOLAR DISORDER
  7. LEXAPRO [Concomitant]
     Indication: DEPRESSION
  8. VISTARIL [Concomitant]
     Indication: ANXIETY
  9. SINGULAIR [Concomitant]
     Indication: ASTHMA
  10. KEPPRA [Concomitant]
     Indication: CONVULSION
  11. IMITREX [Concomitant]
  12. VALIUM [Concomitant]
  13. CELEBREX [Concomitant]
  14. AMBIEN [Concomitant]

REACTIONS (2)
  - COMPLETED SUICIDE [None]
  - INTENTIONAL OVERDOSE [None]
